FAERS Safety Report 24570124 (Version 1)
Quarter: 2024Q4

REPORT INFORMATION
  Report Type: Spontaneous
  Country: DE (occurrence: DE)
  Receive Date: 20241031
  Receipt Date: 20241031
  Transmission Date: 20250114
  Serious: Yes (Hospitalization)
  Sender: BIOMARIN
  Company Number: DE-BIOMARINAP-DE-2024-161231

PATIENT

DRUGS (1)
  1. NAGLAZYME [Suspect]
     Active Substance: GALSULFASE
     Indication: Mucopolysaccharidosis VI
     Dosage: 25 MILLIGRAM, QW
     Route: 042

REACTIONS (5)
  - Device related infection [Unknown]
  - Febrile infection [Unknown]
  - Pyrexia [Unknown]
  - Fatigue [Unknown]
  - Feeling cold [Unknown]

NARRATIVE: CASE EVENT DATE: 20241015
